FAERS Safety Report 18108520 (Version 2)
Quarter: 2021Q4

REPORT INFORMATION
  Report Type: Spontaneous
  Country: US (occurrence: US)
  Receive Date: 20200803
  Receipt Date: 20211103
  Transmission Date: 20220303
  Serious: Yes (Death, Other)
  Sender: FDA-Public Use
  Company Number: US-SAARTEMIS-SAC202007300110

PATIENT
  Age: 69 Year
  Sex: Female

DRUGS (1)
  1. ZANTAC [Suspect]
     Active Substance: RANITIDINE HYDROCHLORIDE
     Indication: Dyspepsia
     Dosage: 150 MG, QD
     Dates: start: 201407, end: 201910

REACTIONS (3)
  - Ovarian cancer [Unknown]
  - Gastric cancer [Unknown]
  - Appendix cancer [Fatal]

NARRATIVE: CASE EVENT DATE: 20190901
